FAERS Safety Report 9285369 (Version 1)
Quarter: 2013Q2

REPORT INFORMATION
  Report Type: Spontaneous
  Country: US (occurrence: US)
  Receive Date: 20130513
  Receipt Date: 20130513
  Transmission Date: 20140414
  Serious: Yes (Other)
  Sender: FDA-Public Use
  Company Number: US-ROCHE-1223320

PATIENT
  Age: 36 Year
  Sex: Male

DRUGS (5)
  1. ACCUTANE [Suspect]
     Indication: ACNE
     Route: 065
     Dates: start: 1990, end: 1994
  2. ACCUTANE [Suspect]
     Dosage: 20 MG, 40 MG
     Route: 065
     Dates: start: 2004, end: 2007
  3. AMNESTEEM [Suspect]
     Indication: ACNE
     Route: 065
     Dates: start: 20070215, end: 20070523
  4. AMNESTEEM [Suspect]
     Route: 065
     Dates: start: 20070705, end: 20070805
  5. AMNESTEEM [Suspect]
     Route: 065
     Dates: start: 2008

REACTIONS (10)
  - Colitis ulcerative [Unknown]
  - Crohn^s disease [Unknown]
  - Inflammatory bowel disease [Unknown]
  - Irritable bowel syndrome [Unknown]
  - Anxiety [Unknown]
  - Depression [Unknown]
  - Iron deficiency anaemia [Recovered/Resolved]
  - Lip dry [Unknown]
  - Dry skin [Unknown]
  - Dry eye [Unknown]
